FAERS Safety Report 5876008-6 (Version None)
Quarter: 2008Q3

REPORT INFORMATION
  Report Type: 
  Country: None (occurrence: None)
  Receive Date: 20080910
  Receipt Date: 20080901
  Transmission Date: 20090109
  Serious: Yes (Hospitalization)
  Sender: FDA-Public Use
  Company Number: DE-CELGENEUS-062-C5013-07071034

PATIENT
  Age: 68 Year
  Sex: Female
  Weight: 64.4 kg

DRUGS (5)
  1. REVLIMID [Suspect]
     Indication: MULTIPLE MYELOMA
     Route: 048
     Dates: start: 20070627, end: 20070717
  2. DEXAMETHASONE [Suspect]
     Indication: MULTIPLE MYELOMA
     Route: 048
     Dates: start: 20070627, end: 20070716
  3. ASPIRIN [Concomitant]
     Indication: ARRHYTHMIA
     Route: 048
  4. VALORON RET [Concomitant]
     Indication: PAIN
     Route: 048
     Dates: start: 20070101
  5. TAFIL [Concomitant]
     Indication: PSYCHOTHERAPY
     Route: 048
     Dates: start: 20070101

REACTIONS (3)
  - BACK PAIN [None]
  - BUNDLE BRANCH BLOCK RIGHT [None]
  - PULMONARY EMBOLISM [None]
